FAERS Safety Report 8494283-9 (Version None)
Quarter: 2012Q2

REPORT INFORMATION
  Report Type: 
  Country: None (occurrence: None)
  Receive Date: 20120627
  Receipt Date: 20120615
  Transmission Date: 20120825
  Serious: Yes (Other)
  Sender: FDA-Public Use
  Company Number: DSA_58066_2012

PATIENT

DRUGS (5)
  1. THERAPEUTIC RADIOPHARMCEUTICALS (THERAPEUTIC RADIOPHARMCEUTICALS ) [Suspect]
  2. CISPLATIN [Suspect]
     Indication: NEUROBLASTOMA
     Dosage: 60 MG/M2 MONTHLY)
  3. LEUCOVORIN CALCIUM [Concomitant]
     Indication: NEUROBLASTOMA
     Dosage: 20 MG/M2
  4. METHOTREXATE SODIUM [Suspect]
     Indication: NEUROBLASTOMA
     Dosage: 30 MG/M2 MONTHLY
  5. FLUOROURACIL [Suspect]
     Indication: NEUROBLASTOMA
     Dosage: 600 MG/M2

REACTIONS (1)
  - NEUTROPENIA [None]
